FAERS Safety Report 15429180 (Version 1)
Quarter: 2018Q3

REPORT INFORMATION
  Report Type: Spontaneous
  Country: SE (occurrence: SE)
  Receive Date: 20180926
  Receipt Date: 20180926
  Transmission Date: 20181010
  Serious: Yes (Death, Hospitalization)
  Sender: FDA-Public Use
  Company Number: SE-BAYER-2018-178387

PATIENT
  Sex: Male

DRUGS (10)
  1. GLUCOPHAGE [Concomitant]
     Active Substance: METFORMIN HYDROCHLORIDE
     Indication: TYPE 2 DIABETES MELLITUS
  2. CORTISONE [Concomitant]
     Active Substance: CORTISONE\HYDROCORTISONE
     Indication: RHEUMATOID ARTHRITIS
  3. ZOCOR [Concomitant]
     Active Substance: SIMVASTATIN
  4. IMURAN [Concomitant]
     Active Substance: AZATHIOPRINE
     Indication: RHEUMATOID ARTHRITIS
  5. CIPROFLOXACIN. [Suspect]
     Active Substance: CIPROFLOXACIN
  6. TOPROL XL [Concomitant]
     Active Substance: METOPROLOL SUCCINATE
  7. ASPIRIN. [Concomitant]
     Active Substance: ASPIRIN
  8. ALLOPURINOL. [Concomitant]
     Active Substance: ALLOPURINOL
  9. RISPERDAL [Concomitant]
     Active Substance: RISPERIDONE
  10. DEXOFEN [DEXCHLORPHENIRAMINE MALEATE] [Concomitant]

REACTIONS (12)
  - Musculoskeletal pain [None]
  - Pain in extremity [None]
  - Weight decreased [None]
  - General physical health deterioration [None]
  - Skin lesion [None]
  - Arthralgia [None]
  - Muscle spasms [None]
  - Burning sensation [None]
  - Medical procedure [None]
  - Hypoaesthesia [None]
  - Muscle atrophy [None]
  - Confusional state [None]

NARRATIVE: CASE EVENT DATE: 2004
